FAERS Safety Report 14378215 (Version 1)
Quarter: 2018Q1

REPORT INFORMATION
  Report Type: Spontaneous
  Country: US (occurrence: US)
  Receive Date: 20180111
  Receipt Date: 20180111
  Transmission Date: 20180509
  Serious: No
  Sender: FDA-Public Use
  Company Number: US-009507513-1712USA008550

PATIENT
  Age: 32 Year
  Sex: Female
  Weight: 73.47 kg

DRUGS (1)
  1. NUVARING [Suspect]
     Active Substance: ETHINYL ESTRADIOL\ETONOGESTREL
     Indication: CONTRACEPTION
     Dosage: 1 RING / EVERY THREE OR FOUR WEEKS
     Route: 067
     Dates: start: 201708

REACTIONS (6)
  - Headache [Not Recovered/Not Resolved]
  - Inappropriate schedule of drug administration [Unknown]
  - Vulvovaginal discomfort [Not Recovered/Not Resolved]
  - Device expulsion [Unknown]
  - Product quality issue [Unknown]
  - Pelvic pain [Not Recovered/Not Resolved]

NARRATIVE: CASE EVENT DATE: 2017
